FAERS Safety Report 16371134 (Version 1)
Quarter: 2019Q2

REPORT INFORMATION
  Report Type: Spontaneous
  Country: CN (occurrence: CN)
  Receive Date: 20190530
  Receipt Date: 20190530
  Transmission Date: 20190711
  Serious: Yes (Hospitalization, Other)
  Sender: FDA-Public Use
  Company Number: CN-ROCHE-2316664

PATIENT
  Age: 12 Year
  Sex: Male

DRUGS (7)
  1. GAMMA GLOBULIN [Concomitant]
     Active Substance: IMMUNE GLOBULIN NOS
     Indication: OFF LABEL USE
     Route: 041
  2. METHYLPREDNISOLONE. [Concomitant]
     Active Substance: METHYLPREDNISOLONE
     Indication: OFF LABEL USE
  3. CEFTRIAXONE. [Suspect]
     Active Substance: CEFTRIAXONE
     Indication: PRODUCT USED FOR UNKNOWN INDICATION
     Route: 041
  4. OSELTAMIVIR [Suspect]
     Active Substance: OSELTAMIVIR
     Indication: UPPER RESPIRATORY TRACT INFECTION
     Route: 048
  5. MANNITOL. [Concomitant]
     Active Substance: MANNITOL
     Indication: OFF LABEL USE
     Route: 041
  6. OSELTAMIVIR [Suspect]
     Active Substance: OSELTAMIVIR
     Indication: OFF LABEL USE
  7. CEFTRIAXONE. [Suspect]
     Active Substance: CEFTRIAXONE
     Indication: OFF LABEL USE

REACTIONS (6)
  - Intentional product use issue [Unknown]
  - Pneumonia [Unknown]
  - Respiratory failure [Unknown]
  - Mental disorder [Recovering/Resolving]
  - Off label use [Unknown]
  - Toxic encephalopathy [Unknown]
